FAERS Safety Report 9573173 (Version 1)
Quarter: 2013Q4

REPORT INFORMATION
  Report Type: Spontaneous
  Country: US (occurrence: US)
  Receive Date: 20131001
  Receipt Date: 20131001
  Transmission Date: 20140711
  Serious: No
  Sender: FDA-Public Use
  Company Number: US-PURDUE-USA-2012-0082382

PATIENT
  Sex: Female
  Weight: 68.03 kg

DRUGS (2)
  1. BUTRANS [Suspect]
     Indication: FIBROMYALGIA
     Dosage: 20 MCG, Q1H
     Route: 062
     Dates: start: 201109
  2. BUTRANS [Suspect]
     Dosage: 20 MCG, Q1H
     Dates: start: 201109

REACTIONS (6)
  - Wrong technique in drug usage process [Unknown]
  - Application site dryness [Unknown]
  - Application site rash [Unknown]
  - Application site pruritus [Unknown]
  - Product adhesion issue [Unknown]
  - Hyperhidrosis [Unknown]
